FAERS Safety Report 19532762 (Version 1)
Quarter: 2021Q3

REPORT INFORMATION
  Report Type: Spontaneous
  Country: MY (occurrence: MY)
  Receive Date: 20210713
  Receipt Date: 20210713
  Transmission Date: 20211014
  Serious: Yes (Other)
  Sender: FDA-Public Use
  Company Number: MY-BAYER-2021-173562

PATIENT
  Age: 85 Year
  Sex: Female

DRUGS (1)
  1. CIPROBAY 400/200 MG/ML [Suspect]
     Active Substance: CIPROFLOXACIN HYDROCHLORIDE
     Indication: CELLULITIS
     Dosage: 400 MG, BID
     Route: 042

REACTIONS (1)
  - Phlebitis [Recovered/Resolved]
